FAERS Safety Report 5553431-0 (Version None)
Quarter: 2007Q4

REPORT INFORMATION
  Report Type: 
  Country: None (occurrence: None)
  Receive Date: 20071211
  Receipt Date: 20071126
  Transmission Date: 20080405
  Serious: No
  Sender: FDA-Public Use
  Company Number: TPA2007A02413

PATIENT
  Age: 60 Year
  Sex: Male
  Weight: 90.7194 kg

DRUGS (5)
  1. ROZEREM [Suspect]
     Indication: INSOMNIA
     Dosage: AS REQUIRED, PER ORAL; 16 MG, 2 IN 1 D, PER ORAL
     Route: 048
     Dates: start: 20071101, end: 20071124
  2. ROZEREM [Suspect]
     Indication: INSOMNIA
     Dosage: AS REQUIRED, PER ORAL; 16 MG, 2 IN 1 D, PER ORAL
     Route: 048
     Dates: start: 20071125, end: 20071126
  3. GEMFIBROZIL [Concomitant]
  4. ADVIL [Concomitant]
  5. UNKNOWN VITAMIN (VITAMINS) [Concomitant]

REACTIONS (2)
  - DRUG INEFFECTIVE [None]
  - INAPPROPRIATE SCHEDULE OF DRUG ADMINISTRATION [None]
